FAERS Safety Report 5844487-6 (Version None)
Quarter: 2008Q3

REPORT INFORMATION
  Report Type: 
  Country: None (occurrence: None)
  Receive Date: 20080812
  Receipt Date: 20080806
  Transmission Date: 20090109
  Serious: Yes (Hospitalization, Other)
  Sender: FDA-Public Use
  Company Number: TPA2008A00709

PATIENT
  Age: 77 Year
  Sex: Female
  Weight: 46.2669 kg

DRUGS (6)
  1. ACTOS [Suspect]
     Indication: TYPE 2 DIABETES MELLITUS
     Dosage: 30 MG, 1 IN 1 D,  PER ORAL; 30 MG, 1 IN 1 D, PER ORAL
     Route: 048
     Dates: end: 20050101
  2. XELODA [Concomitant]
  3. SYNTHROID [Concomitant]
  4. EXTRA STRENGTH TYLENOL [Concomitant]
  5. XANAX [Concomitant]
  6. UNKNOWN CHEMOTHERAPY DRUG (OTHER CHEMOTHERAPEUTICS) [Concomitant]

REACTIONS (11)
  - APPENDICITIS PERFORATED [None]
  - CHRONIC OBSTRUCTIVE PULMONARY DISEASE [None]
  - DYSPNOEA [None]
  - GANGRENE [None]
  - HEADACHE [None]
  - JOINT SWELLING [None]
  - METASTASES TO LIVER [None]
  - METASTASES TO LYMPH NODES [None]
  - PAIN [None]
  - PERIPHERAL COLDNESS [None]
  - WEIGHT DECREASED [None]
